FAERS Safety Report 20685691 (Version 2)
Quarter: 2022Q2

REPORT INFORMATION
  Report Type: Spontaneous
  Country: IT (occurrence: IT)
  Receive Date: 20220407
  Receipt Date: 20220418
  Transmission Date: 20220720
  Serious: Yes (Other)
  Sender: FDA-Public Use
  Company Number: IT-TEVA-2022-IT-2023587

PATIENT
  Age: 67 Year
  Sex: Female

DRUGS (3)
  1. BETAMETHASONE [Suspect]
     Active Substance: BETAMETHASONE
     Indication: Keratitis
     Route: 061
  2. FLUOROMETHOLONE [Suspect]
     Active Substance: FLUOROMETHOLONE
     Indication: Keratitis
     Route: 061
  3. Polyhexamethylene-biguanide [Concomitant]
     Indication: Keratitis
     Route: 061

REACTIONS (2)
  - Keratitis fungal [Recovered/Resolved]
  - Rebound effect [Recovered/Resolved]
